FAERS Safety Report 5573250-9 (Version None)
Quarter: 2007Q4

REPORT INFORMATION
  Report Type: 
  Country: None (occurrence: None)
  Receive Date: 20071220
  Receipt Date: 20071210
  Transmission Date: 20080405
  Serious: Yes (Other)
  Sender: FDA-Public Use
  Company Number: 2007337523

PATIENT
  Age: 77 Year
  Sex: Male
  Weight: 78.0187 kg

DRUGS (2)
  1. VISINE TEARS (GLYCERIN, POLYRTHYLENE GLYCOL, HYDROXYPROPYLMETHYLCELLUL [Suspect]
     Dosage: 2 DROPS, 3 TIMES DAILY, OPHTHALMIC
     Dates: start: 20071115, end: 20071206
  2. METOPROLOL TARTRATE (METOPROL TARTRATE) [Concomitant]

REACTIONS (1)
  - EYE IRRITATION [None]
